FAERS Safety Report 21284438 (Version 2)
Quarter: 2022Q3

REPORT INFORMATION
  Report Type: Spontaneous
  Country: US (occurrence: US)
  Receive Date: 20220902
  Receipt Date: 20220907
  Transmission Date: 20221027
  Serious: No
  Sender: FDA-Public Use
  Company Number: US-AMGEN-USASP2022149544

PATIENT
  Sex: Female

DRUGS (2)
  1. OTEZLA [Suspect]
     Active Substance: APREMILAST
     Indication: Hidradenitis
     Dosage: UNK
     Route: 065
     Dates: start: 2022
  2. OTEZLA [Suspect]
     Active Substance: APREMILAST
     Indication: Off label use

REACTIONS (3)
  - Frustration tolerance decreased [Unknown]
  - Nausea [Recovered/Resolved]
  - Off label use [Unknown]

NARRATIVE: CASE EVENT DATE: 20220101
